FAERS Safety Report 10475766 (Version 4)
Quarter: 2015Q1

REPORT INFORMATION
  Report Type: Spontaneous
  Country: US (occurrence: US)
  Receive Date: 20140925
  Receipt Date: 20150129
  Transmission Date: 20150720
  Serious: Yes (Hospitalization)
  Sender: FDA-Public Use
  Company Number: US-GLAXOSMITHKLINE-A1046608A

PATIENT
  Age: 87 Year
  Sex: Female

DRUGS (9)
  1. RYTHMOL SR [Suspect]
     Active Substance: PROPAFENONE HYDROCHLORIDE
     Indication: HEART RATE IRREGULAR
     Dosage: 225 MG, U
     Route: 065
     Dates: start: 20110701
  2. COUMADIN [Concomitant]
     Active Substance: WARFARIN SODIUM
  3. COREG [Concomitant]
     Active Substance: CARVEDILOL
  4. VITAMINS [Concomitant]
     Active Substance: VITAMINS
  5. RYTHMOL SR [Suspect]
     Active Substance: PROPAFENONE HYDROCHLORIDE
     Indication: CARDIOVASCULAR DISORDER
     Dosage: 225 MG, BID
     Route: 048
  6. POTASSIUM [Concomitant]
     Active Substance: POTASSIUM
  7. DIOVAN [Concomitant]
     Active Substance: VALSARTAN
  8. CLONIDINE. [Concomitant]
     Active Substance: CLONIDINE
  9. FOLIC ACID. [Concomitant]
     Active Substance: FOLIC ACID

REACTIONS (7)
  - Back injury [Recovered/Resolved]
  - Urinary tract infection [Unknown]
  - Rehabilitation therapy [Recovered/Resolved]
  - Malaise [Recovered/Resolved]
  - Asthenia [Unknown]
  - Fall [Recovered/Resolved]
  - Expired product administered [Unknown]

NARRATIVE: CASE EVENT DATE: 201308
